FAERS Safety Report 9867191 (Version 1)
Quarter: 2014Q1

REPORT INFORMATION
  Report Type: Spontaneous
  Country: US (occurrence: None)
  Receive Date: 20140131
  Receipt Date: 20140131
  Transmission Date: 20141002
  Serious: Yes (Death)
  Sender: FDA-Public Use
  Company Number: 2014AP000733

PATIENT
  Age: 62 Year
  Sex: Male

DRUGS (5)
  1. TRAMADOL HYDROCHLORIDE TABLETS [Suspect]
  2. SERTRALINE HYDROCHLORIDE TABLETS [Suspect]
  3. ZOLPIDEM TARTRATE TABLETS [Suspect]
  4. COCAINE [Suspect]
  5. PHENCYCLIDINE [Suspect]

REACTIONS (3)
  - Exposure via ingestion [None]
  - Exposure via inhalation [None]
  - Drug abuse [None]
